FAERS Safety Report 4573854-6 (Version None)
Quarter: 2005Q1

REPORT INFORMATION
  Report Type: 
  Country: None (occurrence: None)
  Receive Date: 20050203
  Receipt Date: 20050121
  Transmission Date: 20050727
  Serious: Yes (Hospitalization)
  Sender: FDA-Public Use
  Company Number: 2004IM000667

PATIENT
  Age: 5 Year
  Sex: Male

DRUGS (1)
  1. ACTIMMUNE [Suspect]
     Indication: CHRONIC GRANULOMATOUS DISEASE
     Dosage: 40 UG; TIW; SUBCUTANEOUS
     Route: 058
     Dates: start: 20021011

REACTIONS (2)
  - CATHETER RELATED INFECTION [None]
  - ENTEROBACTER BACTERAEMIA [None]
